FAERS Safety Report 5362880-5 (Version None)
Quarter: 2007Q2

REPORT INFORMATION
  Report Type: 
  Country: None (occurrence: None)
  Receive Date: 20070615
  Receipt Date: 20070605
  Transmission Date: 20071010
  Serious: Yes (Death)
  Sender: FDA-Public Use
  Company Number: 20073480

PATIENT
  Sex: Male

DRUGS (1)
  1. LIORESAL [Suspect]
     Indication: MUSCLE SPASTICITY
     Dosage: MCG, DAILY, INTRATHECAL
     Route: 037

REACTIONS (6)
  - CARDIOVASCULAR DISORDER [None]
  - GUN SHOT WOUND [None]
  - HYPERTENSION [None]
  - PULMONARY CONGESTION [None]
  - PULMONARY OEDEMA [None]
  - VICTIM OF HOMICIDE [None]
